FAERS Safety Report 17565070 (Version 3)
Quarter: 2020Q3

REPORT INFORMATION
  Report Type: Report from Study
  Country: US (occurrence: US)
  Receive Date: 20200320
  Receipt Date: 20200727
  Transmission Date: 20201102
  Serious: No
  Sender: FDA-Public Use
  Company Number: US-INCYTE CORPORATION-2019IN007767

PATIENT

DRUGS (22)
  1. IDARUBICIN [Concomitant]
     Active Substance: IDARUBICIN
     Indication: LEUKAEMIA
     Dosage: 12 MILLIGRAM/SQ. METER, QD
     Route: 065
     Dates: start: 20190406, end: 20190408
  2. ASPIRIN [ACETYLSALICYLIC ACID] [Concomitant]
     Active Substance: ASPIRIN
     Indication: PROPHYLAXIS
     Dosage: 81 MILLIGRAM,QD
     Route: 065
     Dates: start: 201512, end: 20190610
  3. VENETOCLAX. [Concomitant]
     Active Substance: VENETOCLAX
     Indication: LEUKAEMIA
     Dosage: 100 MILLIGRAM, QD
     Route: 065
     Dates: start: 20190930
  4. DACOGEN [Concomitant]
     Active Substance: DECITABINE
     Indication: LEUKAEMIA
     Dosage: 15 MILLIGRAM/SQ. METER, QD
     Route: 065
     Dates: start: 20190609, end: 20190619
  5. METOPROLOL SUCCINATE. [Concomitant]
     Active Substance: METOPROLOL SUCCINATE
     Indication: HYPERTENSION
     Dosage: 100 MILLIGRAM, QD
     Route: 065
     Dates: start: 20190719
  6. CYTARABINE. [Concomitant]
     Active Substance: CYTARABINE
     Indication: LEUKAEMIA
     Dosage: 100 MILLIGRAM/SQ. METER
     Route: 065
     Dates: start: 20190401, end: 20190405
  7. HYDREA [Concomitant]
     Active Substance: HYDROXYUREA
     Indication: ESSENTIAL THROMBOCYTHAEMIA
     Dosage: 500 MILLIGRAM, TID
     Route: 065
     Dates: start: 201512, end: 20190215
  8. REGLAN [Concomitant]
     Active Substance: METOCLOPRAMIDE HYDROCHLORIDE
     Indication: NAUSEA
     Dosage: 5 MILLIGRAM PRN
     Route: 065
     Dates: start: 20190401
  9. NIACIN. [Concomitant]
     Active Substance: NIACIN
     Indication: HYPERLIPIDAEMIA
     Dosage: 1000 MILLIGRAM, QD
     Route: 065
     Dates: start: 201508, end: 20190827
  10. ZOFRAN [Concomitant]
     Active Substance: ONDANSETRON HYDROCHLORIDE
     Indication: NAUSEA
     Dosage: 4 MILLIGRAM PRN
     Route: 065
     Dates: start: 20190401
  11. ACYCLOVIR [ACICLOVIR] [Concomitant]
     Active Substance: ACYCLOVIR
     Indication: ANTIVIRAL PROPHYLAXIS
     Dosage: 200 MILLIGRAM, BID
     Route: 065
     Dates: start: 20190719
  12. CALCIUM CARBONATE. [Concomitant]
     Active Substance: CALCIUM CARBONATE
     Indication: SUPPLEMENTATION THERAPY
     Dosage: 500 MILLIGRAM PRN
     Route: 065
     Dates: start: 2014, end: 20190604
  13. COMPAZINE [PROCHLORPERAZINE EDISYLATE] [Concomitant]
     Active Substance: PROCHLORPERAZINE EDISYLATE
     Indication: NAUSEA
     Dosage: 10 MILLIGRAM PRN
     Route: 065
     Dates: start: 20190610
  14. MAGNESIUM [Concomitant]
     Active Substance: MAGNESIUM
     Indication: SUPPLEMENTATION THERAPY
     Dosage: 200 MILLIGRAM, QD
     Route: 065
     Dates: start: 20191217
  15. JAKAFI [Suspect]
     Active Substance: RUXOLITINIB
     Indication: ESSENTIAL THROMBOCYTHAEMIA
     Dosage: 15 MILLIGRAM, BID
     Route: 065
     Dates: start: 20190215, end: 20190724
  16. OMEGA 3 FISH OIL [FISH OIL] [Concomitant]
     Indication: HYPERLIPIDAEMIA
     Dosage: 1000 MILLIGRAM, TID
     Route: 065
     Dates: start: 201508, end: 20190604
  17. ATENOLOL. [Concomitant]
     Active Substance: ATENOLOL
     Indication: HYPERTENSION
     Dosage: 25 MILLIGRAM, QD
     Route: 065
     Dates: start: 2015, end: 20190719
  18. LISINOPRIL. [Concomitant]
     Active Substance: LISINOPRIL
     Indication: HYPERTENSION
     Dosage: 5 MILLIGRAM, QD
     Route: 065
     Dates: start: 20190827
  19. VITAMIN D3 [Concomitant]
     Active Substance: CHOLECALCIFEROL
     Indication: SUPPLEMENTATION THERAPY
     Dosage: 5000 INTERNATIONAL UNIT, QD
     Route: 065
     Dates: start: 2014
  20. FLONASE [Concomitant]
     Active Substance: FLUTICASONE PROPIONATE
     Indication: NASAL CONGESTION
     Dosage: 1 SPRAY PRN
     Route: 065
     Dates: start: 20150804
  21. POTASSIUM [Concomitant]
     Active Substance: POTASSIUM
     Indication: SUPPLEMENTATION THERAPY
     Dosage: 20 MILLIEQUIVALENT, QD
     Route: 065
     Dates: start: 20190609, end: 20190619
  22. VITAMIN B12 [Concomitant]
     Active Substance: CYANOCOBALAMIN
     Indication: SUPPLEMENTATION THERAPY
     Dosage: 2 TABLET QD
     Route: 065
     Dates: start: 2014

REACTIONS (5)
  - Neutrophil count decreased [Not Recovered/Not Resolved]
  - Insomnia [Not Recovered/Not Resolved]
  - Decreased appetite [Not Recovered/Not Resolved]
  - Platelet count decreased [Recovered/Resolved with Sequelae]
  - Diarrhoea [Not Recovered/Not Resolved]

NARRATIVE: CASE EVENT DATE: 20190612
